FAERS Safety Report 8074175-X (Version None)
Quarter: 2012Q1

REPORT INFORMATION
  Report Type: 
  Country: None (occurrence: None)
  Receive Date: 20120119
  Receipt Date: 20120111
  Transmission Date: 20120608
  Serious: Yes (Hospitalization)
  Sender: FDA-Public Use
  Company Number: 2012SP001713

PATIENT
  Age: 63 Year
  Sex: Female

DRUGS (9)
  1. VENLAFAXINE [Concomitant]
  2. ACETAMINOPHEN [Concomitant]
  3. RHINOCORT [Concomitant]
  4. PROPRANOLOL [Concomitant]
  5. CELESTONE [Suspect]
     Indication: NASOPHARYNGITIS
     Dosage: ;PO
     Route: 048
     Dates: start: 20111223, end: 20111230
  6. LEVOTHYROXINE SODIUM [Concomitant]
  7. PERINDOPRIL ERBUMINE [Concomitant]
  8. AUGMENTIN '125' [Suspect]
     Indication: NASOPHARYNGITIS
     Dates: start: 20111223, end: 20111230
  9. EXOMUC [Concomitant]

REACTIONS (8)
  - HYPERTHERMIA [None]
  - RASH GENERALISED [None]
  - EPSTEIN-BARR VIRUS TEST POSITIVE [None]
  - HUMAN HERPESVIRUS 6 INFECTION [None]
  - RASH MACULO-PAPULAR [None]
  - GENITAL HERPES [None]
  - MEASLES [None]
  - MYCOPLASMA INFECTION [None]
